FAERS Safety Report 4509131-9 (Version None)
Quarter: 2005Q1

REPORT INFORMATION
  Report Type: 
  Country: None (occurrence: None)
  Receive Date: 20041025
  Receipt Date: 20040806
  Transmission Date: 20050727
  Serious: Yes (Hospitalization)
  Sender: FDA-Public Use
  Company Number: US-JNJFOC-20040802666

PATIENT
  Age: 58 Year
  Sex: Female

DRUGS (12)
  1. INFLIXIMAB (INFLIXIMAB, RECOMBINANT) LYOPHILIZED POWDER [Suspect]
     Indication: RHEUMATOID ARTHRITIS
     Dosage: INTRAVENOUS
     Route: 042
     Dates: start: 20040515, end: 20010901
  2. AZATHIOPRINE [Concomitant]
  3. GLYBURIDE [Concomitant]
  4. TOPROL ( ) METOPROLOL SUCCINATE [Concomitant]
  5. PREDNISONE [Concomitant]
  6. ACIPHEX [Concomitant]
  7. SYNTHROID [Concomitant]
  8. FUROSEMIDE [Concomitant]
  9. AVANDIA [Concomitant]
  10. POTASSIUM (POTASSIUM) [Concomitant]
  11. WARFARIN SODIUM [Concomitant]
  12. HUMIRA [Concomitant]

REACTIONS (1)
  - DEEP VEIN THROMBOSIS [None]
